FAERS Safety Report 16412581 (Version 2)
Quarter: 2019Q3

REPORT INFORMATION
  Report Type: Report from Study
  Country: US (occurrence: US)
  Receive Date: 20190610
  Receipt Date: 20190722
  Transmission Date: 20191004
  Serious: Yes (Hospitalization)
  Sender: FDA-Public Use
  Company Number: US-BTG-201900095

PATIENT
  Age: 18 Year
  Sex: Female
  Weight: 88.2 kg

DRUGS (7)
  1. DIGIFAB [Suspect]
     Active Substance: OVINE DIGOXIN IMMUNE FAB
     Indication: PRE-ECLAMPSIA
     Dosage: ONE IV INJECTION FOR EVERY 6H (Q6H),UP TO 96H (Q6H).THE SUBJECT RECEIVED A TOTAL OF 12 DOSES
     Route: 042
     Dates: start: 20190518, end: 20190521
  2. NIFEDIPINE. [Concomitant]
     Active Substance: NIFEDIPINE
     Indication: PRE-ECLAMPSIA
     Dosage: ONCE DAILY (QD)
     Route: 048
     Dates: start: 20190522, end: 20190522
  3. BETAMETHASONE ACETATE-BETAMETHASONE SODIUM PHOSPHATE [Concomitant]
     Indication: MATERNAL THERAPY TO ENHANCE FOETAL LUNG MATURITY
     Dosage: ONCE DAILY (QD)
     Route: 030
     Dates: start: 20190516, end: 20190517
  4. LABETALOL [Concomitant]
     Active Substance: LABETALOL\LABETALOL HYDROCHLORIDE
     Indication: PRE-ECLAMPSIA
     Dosage: TWICE DAILY (BID)
     Route: 048
     Dates: start: 20190522, end: 20190526
  5. LABETALOL [Concomitant]
     Active Substance: LABETALOL\LABETALOL HYDROCHLORIDE
     Indication: PRE-ECLAMPSIA
     Dosage: TWICE DAILY (BID)
     Route: 048
     Dates: start: 20190526
  6. NIFEDIPINE. [Concomitant]
     Active Substance: NIFEDIPINE
     Indication: PRE-ECLAMPSIA
     Dosage: ONCE DAILY (QD)
     Route: 048
     Dates: start: 20190523
  7. NIFEDIPINE. [Concomitant]
     Active Substance: NIFEDIPINE
     Indication: PRE-ECLAMPSIA
     Dosage: ONCE DAILY (QD)
     Route: 048
     Dates: start: 20190516, end: 20190522

REACTIONS (2)
  - Maternal exposure during pregnancy [Unknown]
  - Liver function test increased [Recovered/Resolved]

NARRATIVE: CASE EVENT DATE: 20190518
